FAERS Safety Report 5206015-8 (Version None)
Quarter: 2007Q1

REPORT INFORMATION
  Report Type: 
  Country: None (occurrence: None)
  Receive Date: 20070108
  Receipt Date: 20061228
  Transmission Date: 20070707
  Serious: Yes (Death, Life-Threatening, Hospitalization)
  Sender: FDA-Public Use
  Company Number: HQWYE292324JUL06

PATIENT
  Age: 67 Year
  Sex: Male

DRUGS (15)
  1. ANCARON (AMIODARONE, TABLET) [Suspect]
     Indication: VENTRICULAR TACHYCARDIA
     Dosage: SEE IMAGE
     Route: 048
     Dates: start: 20060622, end: 20060628
  2. ANCARON (AMIODARONE, TABLET) [Suspect]
     Indication: VENTRICULAR TACHYCARDIA
     Dosage: SEE IMAGE
     Route: 048
     Dates: start: 20060629, end: 20060706
  3. ANCARON (AMIODARONE, TABLET) [Suspect]
     Indication: VENTRICULAR TACHYCARDIA
     Dosage: SEE IMAGE
     Route: 048
     Dates: start: 20060707, end: 20060708
  4. FAMOTIDINE [Concomitant]
  5. ALLOPURINOL [Concomitant]
  6. SLOW-K [Concomitant]
  7. LASIX [Concomitant]
  8. ALDACTONE [Concomitant]
  9. WARFARIN SODIUM [Concomitant]
  10. DOBUTREX [Concomitant]
  11. SHINBIT (NIFEKALANT HYDROCHLORIDE) [Concomitant]
  12. MILRINONE (MILRINONE) [Concomitant]
  13. DOPAMINE HYDROCHLORIDE [Concomitant]
  14. .. [Concomitant]
  15. .. [Concomitant]

REACTIONS (8)
  - BRAIN NATRIURETIC PEPTIDE INCREASED [None]
  - CARDIAC FAILURE [None]
  - CARDIOGENIC SHOCK [None]
  - CONDITION AGGRAVATED [None]
  - HAEMODIALYSIS [None]
  - HEPATIC FAILURE [None]
  - RENAL FAILURE [None]
  - SEPSIS [None]
